FAERS Safety Report 10025070 (Version 1)
Quarter: 2014Q1

REPORT INFORMATION
  Report Type: Spontaneous
  Country: US (occurrence: None)
  Receive Date: 20140304
  Receipt Date: 20140304
  Transmission Date: 20141002
  Serious: Yes (Other)
  Sender: FDA-Public Use
  Company Number: RB-51774-2013

PATIENT
  Age: 53 Year
  Sex: Female

DRUGS (2)
  1. BUPRENORPHINE W/NALOXONE [Suspect]
     Indication: PAIN
     Route: 060
     Dates: start: 20130316, end: 20130317
  2. SUBOXONE [Suspect]
     Indication: PAIN
     Dosage: DOSING DETAIL UNKNOWN
     Route: 060
     Dates: start: 20130317

REACTIONS (4)
  - Vomiting [None]
  - Malaise [None]
  - Off label use [None]
  - Hypotension [None]
